FAERS Safety Report 17682631 (Version 4)
Quarter: 2020Q2

REPORT INFORMATION
  Report Type: Spontaneous
  Country: US (occurrence: US)
  Receive Date: 20200419
  Receipt Date: 20200513
  Transmission Date: 20200714
  Serious: Yes (Other)
  Sender: FDA-Public Use
  Company Number: US-AMGEN-USASP2020061222

PATIENT
  Age: 78 Year
  Sex: Male

DRUGS (7)
  1. FLOMAX [Concomitant]
     Active Substance: TAMSULOSIN HYDROCHLORIDE
     Indication: INCONTINENCE
     Dosage: 4 MILLIGRAM, QD
  2. ROPINIROLE. [Concomitant]
     Active Substance: ROPINIROLE
     Indication: PAIN
     Dosage: UNK
  3. MELOXICAM. [Concomitant]
     Active Substance: MELOXICAM
     Indication: PAIN
     Dosage: UNK
  4. PROLIA [Suspect]
     Active Substance: DENOSUMAB
     Indication: OSTEOPOROSIS
  5. FINASTERIDE. [Concomitant]
     Active Substance: FINASTERIDE
     Dosage: 5 MILLIGRAM, QD
  6. PROLIA [Suspect]
     Active Substance: DENOSUMAB
     Indication: ARTHRITIS
     Dosage: 60 MILLIGRAM
     Route: 065
     Dates: start: 20200409
  7. SINEMET [Concomitant]
     Active Substance: CARBIDOPA\LEVODOPA
     Indication: PAIN
     Dosage: UNK

REACTIONS (9)
  - Toothache [Recovering/Resolving]
  - Rash pruritic [Unknown]
  - Dermatitis [Unknown]
  - Back pain [Unknown]
  - Stress fracture [Unknown]
  - Pain in jaw [Unknown]
  - Road traffic accident [Unknown]
  - Off label use [Unknown]
  - Neck pain [Unknown]

NARRATIVE: CASE EVENT DATE: 202004
